FAERS Safety Report 7969877-7 (Version None)
Quarter: 2011Q4

REPORT INFORMATION
  Report Type: 
  Country: None (occurrence: None)
  Receive Date: 20111121
  Receipt Date: 20110808
  Transmission Date: 20120403
  Serious: No
  Sender: FDA-Public Use
  Company Number: 1000022732

PATIENT
  Age: 35 Year
  Sex: Male

DRUGS (3)
  1. VIIBRYD [Suspect]
     Indication: MAJOR DEPRESSION
     Dosage: ORAL
     Route: 048
     Dates: start: 20110701
  2. TOPROL (METOPROLOL SUCCINATE) (METOPROLOL SUCCINATE) [Concomitant]
  3. ADDERALL XR (AMPHETAMINE, DEXTROAMPHETAMINE) (AMPHETAMINE, DEXTROAMPHE [Concomitant]

REACTIONS (1)
  - GOUT [None]
